FAERS Safety Report 9322946 (Version 1)
Quarter: 2013Q2

REPORT INFORMATION
  Report Type: Spontaneous
  Country: GB (occurrence: GB)
  Receive Date: 20130601
  Receipt Date: 20130601
  Transmission Date: 20140414
  Serious: Yes (Disabling)
  Sender: FDA-Public Use
  Company Number: GB-ROCHE-1229409

PATIENT
  Age: 57 Year
  Sex: Female

DRUGS (11)
  1. MABTHERA [Suspect]
     Indication: RHEUMATOID ARTHRITIS
     Route: 041
     Dates: start: 20120404
  2. MABTHERA [Suspect]
     Route: 041
     Dates: start: 20130205
  3. MABTHERA [Suspect]
     Route: 041
     Dates: start: 20120319
  4. MABTHERA [Suspect]
     Route: 041
     Dates: start: 20130220
  5. HYDROXYCHLOROQUINE [Suspect]
     Indication: PRODUCT USED FOR UNKNOWN INDICATION
     Route: 065
  6. AMOXICILLIN [Concomitant]
     Route: 065
     Dates: start: 201302
  7. FOLIC ACID [Concomitant]
     Route: 065
  8. METHOTREXATE [Concomitant]
     Route: 065
  9. OMEPRAZOLE [Concomitant]
  10. PREDNISOLONE [Concomitant]
  11. TRAMADOL [Concomitant]

REACTIONS (11)
  - Condition aggravated [Recovering/Resolving]
  - Erythema [Unknown]
  - Excoriation [Unknown]
  - Rash pruritic [Unknown]
  - Mouth ulceration [Unknown]
  - Dyshidrotic eczema [Recovering/Resolving]
  - Post inflammatory pigmentation change [Unknown]
  - Rash [Recovered/Resolved]
  - Skin fissures [Unknown]
  - Skin exfoliation [Unknown]
  - Rash vesicular [Unknown]
